FAERS Safety Report 4428436-3 (Version None)
Quarter: 2004Q3

REPORT INFORMATION
  Report Type: 
  Country: None (occurrence: None)
  Receive Date: 20040813
  Receipt Date: 20040729
  Transmission Date: 20050211
  Serious: Yes (Hospitalization)
  Sender: FDA-Public Use
  Company Number: 04P-087-0268657-00

PATIENT
  Age: 69 Year
  Sex: Female

DRUGS (3)
  1. BIAXIN [Suspect]
     Indication: HELICOBACTER INFECTION
     Dosage: 0.5, 1 IN 1 D, PER ORAL
     Route: 048
     Dates: start: 20040531, end: 20040531
  2. AMOXICILLIN [Suspect]
     Indication: HELICOBACTER INFECTION
     Dates: start: 20040531, end: 20040531
  3. LANSOPRAZOLE [Suspect]
     Indication: HELICOBACTER INFECTION
     Dates: start: 20040531, end: 20040531

REACTIONS (9)
  - CONJUNCTIVAL HYPERAEMIA [None]
  - EXCORIATION [None]
  - FACE OEDEMA [None]
  - FEELING HOT [None]
  - GENERALISED ERYTHEMA [None]
  - MALAISE [None]
  - PRURITUS [None]
  - PYREXIA [None]
  - RASH [None]
